FAERS Safety Report 14883280 (Version 2)
Quarter: 2018Q2

REPORT INFORMATION
  Report Type: Spontaneous
  Country: DK (occurrence: DK)
  Receive Date: 20180511
  Receipt Date: 20180605
  Transmission Date: 20180711
  Serious: Yes (Life-Threatening, Hospitalization, Other)
  Sender: FDA-Public Use
  Company Number: DK-SA-2018SA132517

PATIENT
  Age: 44 Year
  Sex: Male
  Weight: 65 kg

DRUGS (2)
  1. OXALIPLATIN. [Suspect]
     Active Substance: OXALIPLATIN
     Indication: MUCINOUS ADENOCARCINOMA OF APPENDIX
     Dosage: 92 MG/M2,UNK
     Route: 033
     Dates: start: 201702, end: 201702
  2. OXALIPLATIN. [Suspect]
     Active Substance: OXALIPLATIN
     Indication: MALIGNANT PERITONEAL NEOPLASM
     Dosage: 92 MG/M2,UNK
     Route: 033
     Dates: start: 201705, end: 201705

REACTIONS (7)
  - Abdominal pain [Unknown]
  - Decreased appetite [Unknown]
  - Procedural pain [Unknown]
  - Pain [Unknown]
  - Encapsulating peritoneal sclerosis [Unknown]
  - Fibrosis [Unknown]
  - Burning sensation [Unknown]

NARRATIVE: CASE EVENT DATE: 2017
